FAERS Safety Report 13826085 (Version 1)
Quarter: 2017Q3

REPORT INFORMATION
  Report Type: Spontaneous
  Country: ES (occurrence: ES)
  Receive Date: 20170802
  Receipt Date: 20170802
  Transmission Date: 20171127
  Serious: Yes (Life-Threatening, Hospitalization)
  Sender: FDA-Public Use
  Company Number: PHHY2017ES113379

PATIENT
  Age: 4 Month
  Sex: Male

DRUGS (2)
  1. VALPROIC ACID. [Concomitant]
     Active Substance: VALPROIC ACID
     Indication: INFANTILE SPASMS
     Dosage: UNK
     Route: 065
  2. TETRACOSACTIDE [Suspect]
     Active Substance: COSYNTROPIN
     Indication: INFANTILE SPASMS
     Dosage: 5 IU/KG, QD
     Route: 030

REACTIONS (7)
  - Pneumocystis jirovecii infection [Recovered/Resolved]
  - Acute respiratory distress syndrome [Recovered/Resolved]
  - Decreased appetite [Recovered/Resolved]
  - Asthenia [Recovered/Resolved]
  - Dyspnoea [Recovered/Resolved]
  - Pyrexia [Recovered/Resolved]
  - Hypoxia [Recovered/Resolved]
